FAERS Safety Report 5766288-X (Version None)
Quarter: 2008Q2

REPORT INFORMATION
  Report Type: 
  Country: None (occurrence: None)
  Receive Date: 20080606
  Receipt Date: 20080522
  Transmission Date: 20081010
  Serious: Yes (Death)
  Sender: FDA-Public Use
  Company Number: 2008AL005803

PATIENT
  Age: 75 Year
  Sex: Male

DRUGS (1)
  1. DIGOXIN [Suspect]
     Indication: ARRHYTHMIA
     Dosage: 0.125MG, QD, PO
     Route: 048

REACTIONS (3)
  - CHOLECYSTECTOMY [None]
  - DIZZINESS [None]
  - VOMITING [None]
